FAERS Safety Report 25553419 (Version 2)
Quarter: 2025Q4

REPORT INFORMATION
  Report Type: Report from Study
  Country: EU (occurrence: EU)
  Receive Date: 20250715
  Receipt Date: 20251026
  Transmission Date: 20260117
  Serious: Yes (Hospitalization)
  Sender: ABBVIE
  Company Number: EU-ABBVIE-6368055

PATIENT
  Age: 84 Year
  Sex: Male

DRUGS (2)
  1. FOSCARBIDOPA\FOSLEVODOPA [Suspect]
     Active Substance: FOSCARBIDOPA\FOSLEVODOPA
     Indication: Parkinson^s disease
     Dosage: (SD: 0.60 ML), CRL: 0.42 ML/H, CR: 0.43 ML/H, CRH: 0.46 ML/H, ED: 0.30 ML
     Route: 058
     Dates: start: 20240820
  2. FOSCARBIDOPA\FOSLEVODOPA [Suspect]
     Active Substance: FOSCARBIDOPA\FOSLEVODOPA
     Dosage: CRN: 0.38 ML/H, CR: 0.40 ML/H, CRH: 0.43 ML/H, ED: 0.30 ML
     Route: 058

REACTIONS (7)
  - General physical health deterioration [Not Recovered/Not Resolved]
  - Immobile [Not Recovered/Not Resolved]
  - Musculoskeletal stiffness [Not Recovered/Not Resolved]
  - Pain in extremity [Recovered/Resolved]
  - Device issue [Unknown]
  - Movement disorder [Recovered/Resolved]
  - Device occlusion [Unknown]

NARRATIVE: CASE EVENT DATE: 20250101
